FAERS Safety Report 6820407-2 (Version None)
Quarter: 2010Q3

REPORT INFORMATION
  Report Type: 
  Country: None (occurrence: None)
  Receive Date: 20100707
  Receipt Date: 20100618
  Transmission Date: 20110219
  Serious: No
  Sender: FDA-Public Use
  Company Number: US-TEVA-239682USA

PATIENT
  Age: 70 Year
  Sex: Female

DRUGS (1)
  1. AZILECT [Suspect]

REACTIONS (1)
  - BLOOD PRESSURE INCREASED [None]
